FAERS Safety Report 10573040 (Version 1)
Quarter: 2014Q4

REPORT INFORMATION
  Report Type: Spontaneous
  Country: US (occurrence: None)
  Receive Date: 20141107
  Receipt Date: 20141107
  Transmission Date: 20150529
  Serious: No
  Sender: FDA-Public Use
  Company Number: None

PATIENT
  Age: 48 Year
  Sex: Female

DRUGS (7)
  1. VESICARE [Concomitant]
     Active Substance: SOLIFENACIN SUCCINATE
  2. OMEPRAZOLE. [Concomitant]
     Active Substance: OMEPRAZOLE
  3. DANTROLENE [Concomitant]
     Active Substance: DANTROLENE
  4. BACLOFEN. [Concomitant]
     Active Substance: BACLOFEN
  5. LABETOLOL [Concomitant]
  6. PENTASA [Concomitant]
     Active Substance: MESALAMINE
  7. AUBAGIO [Suspect]
     Active Substance: TERIFLUNOMIDE
     Indication: MULTIPLE SCLEROSIS
     Route: 048
     Dates: start: 20131004, end: 20141106

REACTIONS (2)
  - Scab [None]
  - Blister [None]

NARRATIVE: CASE EVENT DATE: 20141006
